FAERS Safety Report 19514118 (Version 1)
Quarter: 2021Q3

REPORT INFORMATION
  Report Type: Report from Study
  Country: BE (occurrence: BE)
  Receive Date: 20210709
  Receipt Date: 20210709
  Transmission Date: 20211014
  Serious: Yes (Other)
  Sender: FDA-Public Use
  Company Number: BE-BRISTOL-MYERS SQUIBB COMPANY-BMS-2021-064326

PATIENT
  Age: 67 Year
  Sex: Male

DRUGS (2)
  1. IPILIMUMAB [Suspect]
     Active Substance: IPILIMUMAB
     Indication: MALIGNANT MELANOMA
     Dosage: GIVEN IN HOSPITAL, Q3WK
     Route: 065
     Dates: start: 20210414
  2. NIVOLUMAB [Suspect]
     Active Substance: NIVOLUMAB
     Indication: MALIGNANT MELANOMA
     Dosage: GIVEN IN HOSPITAL, Q3WK
     Route: 065
     Dates: start: 20210414

REACTIONS (2)
  - Hypothalamo-pituitary disorder [Unknown]
  - Thyroid disorder [Unknown]
